FAERS Safety Report 13794263 (Version 1)
Quarter: 2017Q3

REPORT INFORMATION
  Report Type: Spontaneous
  Country: US (occurrence: US)
  Receive Date: 20170726
  Receipt Date: 20170726
  Transmission Date: 20171127
  Serious: No
  Sender: FDA-Public Use
  Company Number: US-PFIZER INC-2017323907

PATIENT
  Sex: Female

DRUGS (3)
  1. XELJANZ [Suspect]
     Active Substance: TOFACITINIB CITRATE
     Dosage: 5 MG, 1X/DAY
  2. XELJANZ [Suspect]
     Active Substance: TOFACITINIB CITRATE
     Dosage: 5 MG, 2X/DAY
  3. LIPITOR [Suspect]
     Active Substance: ATORVASTATIN CALCIUM
     Dosage: 80 MG, UNK

REACTIONS (17)
  - Joint stiffness [Unknown]
  - Blood urea increased [Unknown]
  - Arthralgia [Unknown]
  - Blood pressure increased [Unknown]
  - Drug intolerance [Unknown]
  - Mean cell haemoglobin concentration decreased [Unknown]
  - Fatigue [Unknown]
  - Stress [Unknown]
  - Mean cell haemoglobin decreased [Unknown]
  - Feeling hot [Unknown]
  - Tenderness [Unknown]
  - Haemoglobin decreased [Unknown]
  - Asthenia [Unknown]
  - Joint swelling [Unknown]
  - Musculoskeletal stiffness [Unknown]
  - Red blood cell sedimentation rate increased [Unknown]
  - Synovitis [Unknown]
